FAERS Safety Report 5946736-2 (Version None)
Quarter: 2008Q4

REPORT INFORMATION
  Report Type: 
  Country: None (occurrence: None)
  Receive Date: 20081110
  Receipt Date: 20081030
  Transmission Date: 20090506
  Serious: Yes (Hospitalization, Other)
  Sender: FDA-Public Use
  Company Number: US-BIOGENIDEC-2006BI006620

PATIENT
  Age: 59 Year
  Sex: Female
  Weight: 131 kg

DRUGS (2)
  1. AVONEX [Suspect]
     Indication: MULTIPLE SCLEROSIS
     Route: 030
     Dates: start: 20011103, end: 20030801
  2. AVONEX [Suspect]
     Route: 030
     Dates: start: 20030801

REACTIONS (13)
  - ANKLE FRACTURE [None]
  - CELLULITIS [None]
  - CIRCULATING ANTICOAGULANT [None]
  - DEEP VEIN THROMBOSIS [None]
  - FALL [None]
  - GRAND MAL CONVULSION [None]
  - HAEMORRHAGIC DISORDER [None]
  - INJECTION SITE PRURITUS [None]
  - LIMB INJURY [None]
  - MENINGIOMA [None]
  - MUSCULAR WEAKNESS [None]
  - PHLEBITIS [None]
  - POST PROCEDURAL COMPLICATION [None]
